FAERS Safety Report 17957682 (Version 1)
Quarter: 2020Q2

REPORT INFORMATION
  Report Type: Spontaneous
  Country: FR (occurrence: FR)
  Receive Date: 20200629
  Receipt Date: 20200629
  Transmission Date: 20200714
  Serious: Yes (Hospitalization)
  Sender: FDA-Public Use
  Company Number: FR-TEVA-2020-FR-1791883

PATIENT
  Age: 67 Year
  Sex: Male
  Weight: 73 kg

DRUGS (14)
  1. ROSUVASTATINE [Suspect]
     Active Substance: ROSUVASTATIN
     Indication: PROPHYLAXIS
     Dosage: 20 MG
     Route: 048
     Dates: end: 20200121
  2. LEVOTHYROX [Concomitant]
     Active Substance: LEVOTHYROXINE
  3. RAMIPRIL. [Concomitant]
     Active Substance: RAMIPRIL
  4. LASILIX [Concomitant]
     Active Substance: FUROSEMIDE
  5. BISOCE [Concomitant]
     Active Substance: BISOPROLOL
  6. PANTOPRAZOLE [Concomitant]
     Active Substance: PANTOPRAZOLE
  7. KARDEGIC [Concomitant]
     Active Substance: ASPIRIN DL-LYSINE
  8. NICOPATCH [Concomitant]
     Active Substance: NICOTINE
  9. JANUVIA [Concomitant]
     Active Substance: SITAGLIPTIN PHOSPHATE
  10. SERESTA [Concomitant]
     Active Substance: OXAZEPAM
  11. COUMADINE [Concomitant]
     Active Substance: WARFARIN SODIUM
  12. FUMAFER [Concomitant]
     Active Substance: FERROUS FUMARATE
  13. EPLERENONE. [Concomitant]
     Active Substance: EPLERENONE
  14. VICTOZA [Concomitant]
     Active Substance: LIRAGLUTIDE

REACTIONS (2)
  - Photosensitivity reaction [Recovering/Resolving]
  - Eczema [Recovering/Resolving]

NARRATIVE: CASE EVENT DATE: 201910
